FAERS Safety Report 10380386 (Version 1)
Quarter: 2014Q3

REPORT INFORMATION
  Report Type: Spontaneous
  Country: US (occurrence: None)
  Receive Date: 20140812
  Receipt Date: 20140812
  Transmission Date: 20150326
  Serious: No
  Sender: FDA-Public Use
  Company Number: None

PATIENT
  Age: 32 Year
  Sex: Male
  Weight: 72.58 kg

DRUGS (1)
  1. AMPHETAMINE SALTS [Suspect]
     Active Substance: AMPHETAMINE ASPARTATE\AMPHETAMINE SULFATE\DEXTROAMPHETAMINE SACCHARATE\DEXTROAMPHETAMINE SULFATE
     Indication: ATTENTION DEFICIT/HYPERACTIVITY DISORDER
     Dosage: 1 TABLET  THREE TIMES DAILY TAKEN BY MOUTH
     Route: 048

REACTIONS (4)
  - Chest pain [None]
  - Hypoaesthesia [None]
  - Neuropathy peripheral [None]
  - Paraesthesia [None]

NARRATIVE: CASE EVENT DATE: 20140416
